FAERS Safety Report 10751371 (Version 2)
Quarter: 2015Q1

REPORT INFORMATION
  Report Type: Spontaneous
  Country: US (occurrence: US)
  Receive Date: 20150130
  Receipt Date: 20150203
  Transmission Date: 20150721
  Serious: Yes (Other)
  Sender: FDA-Public Use
  Company Number: 2015SP000229

PATIENT
  Age: 50 Year
  Sex: Female
  Weight: 52 kg

DRUGS (2)
  1. LATUDA [Suspect]
     Active Substance: LURASIDONE HYDROCHLORIDE
     Indication: PSYCHOTIC DISORDER
     Route: 048
  2. LATUDA [Suspect]
     Active Substance: LURASIDONE HYDROCHLORIDE
     Indication: PSYCHOTIC DISORDER
     Route: 048

REACTIONS (4)
  - Dizziness [Unknown]
  - Syncope [Recovered/Resolved]
  - Orthostatic hypotension [Recovered/Resolved]
  - Off label use [None]
